FAERS Safety Report 15546045 (Version 1)
Quarter: 2018Q4

REPORT INFORMATION
  Report Type: Spontaneous
  Country: GB (occurrence: GB)
  Receive Date: 20181024
  Receipt Date: 20181024
  Transmission Date: 20190205
  Serious: Yes (Other)
  Sender: FDA-Public Use
  Company Number: GB-PURDUE PHARMA-GBR-2018-0060674

PATIENT
  Age: 68 Year
  Sex: Male
  Weight: 100 kg

DRUGS (19)
  1. GLYCERYL TRINITRATE [Concomitant]
     Active Substance: NITROGLYCERIN
     Dosage: UNK, PRN (SPRAY ONE PUFF UNDER THE TONGUE)(DOSAGE FORM 240)
     Route: 060
     Dates: start: 20171122
  2. MORPHINE SULFATE. [Suspect]
     Active Substance: MORPHINE SULFATE
     Indication: PRODUCT USED FOR UNKNOWN INDICATION
     Dosage: UNK
     Route: 065
     Dates: start: 20171122
  3. CEFALEXIN [Concomitant]
     Active Substance: CEPHALEXIN
     Dosage: 1 DF, QOD, ON ALTERNATE NIGHTS TO PREVENT URINE... (DOSAGE FORM 245)
     Dates: start: 20171122, end: 20180727
  4. COLCHICINE. [Concomitant]
     Active Substance: COLCHICINE
     Dosage: TAKE ONE TABLET TWO TO FOUR TIMES DAILY UNTIL S...(PHARMACEUTICAL DOSE FORM 245)
     Dates: start: 20171122, end: 20180727
  5. CODEINE PHOSPHATE [Concomitant]
     Active Substance: CODEINE PHOSPHATE
     Dosage: TAKE ONE OR TWO TABLETS UP TO FOUR TIMES DAILY ...(PHARMACEUTICAL DOSE FORM 245)
  6. PARACETAMOL [Concomitant]
     Active Substance: ACETAMINOPHEN
     Dosage: 8 DF, DAILY
     Dates: start: 20171122
  7. LANSOPRAZOLE. [Concomitant]
     Active Substance: LANSOPRAZOLE
     Dosage: 1 DF, PRN (TAKE ONE TABLET UP TO TWO TIMES DAILY)(DOSAGE FORM 245)
     Dates: start: 20171128
  8. BISOPROLOL [Concomitant]
     Active Substance: BISOPROLOL
     Dosage: 1 DF, DAILY (IN THE MORNING)
     Dates: start: 20171128
  9. LOSARTAN. [Concomitant]
     Active Substance: LOSARTAN
     Dosage: 1 DF, DAILY (EACH  MORNING)
     Dates: start: 20171122
  10. ATORVASTATIN [Concomitant]
     Active Substance: ATORVASTATIN
     Dosage: 1 DF, DAILY, AT NIGHT (DOSAGE FORM 245)
     Dates: start: 20171122
  11. LEVOTHYROXINE. [Concomitant]
     Active Substance: LEVOTHYROXINE
     Dosage: 1 DF, DAILY (EACH MORNING)
     Dates: start: 20171128
  12. CALCIUM CARBONATE. [Concomitant]
     Active Substance: CALCIUM CARBONATE
     Dosage: 2 DF, DAILY (TAKE ONE AT LUNCH AND ONE EACH EVENING)
     Dates: start: 20171122
  13. FUROSEMIDE. [Concomitant]
     Active Substance: FUROSEMIDE
     Dosage: 1 DF, DAILY (EACH MORNING)
     Dates: start: 20171122
  14. PREDNISOLONE. [Concomitant]
     Active Substance: PREDNISOLONE
     Dosage: 1 DF, DAILY (EACH MORNING)
     Dates: start: 20171122
  15. MAGNESIUM GLYCEROPHOSPHATE [Concomitant]
     Active Substance: MAGNESIUM GLYCEROPHOSPHATE
     Dosage: 2 DF, DAILY (TAKE ONE AT LUNCH AND ONE EACH EVENING)
     Dates: start: 20171122
  16. DULOXETINE. [Concomitant]
     Active Substance: DULOXETINE
     Dosage: 1 DF, DAILY (EACH MORNING)
     Dates: start: 20171122
  17. PRASUGREL. [Concomitant]
     Active Substance: PRASUGREL
     Dosage: 1 DF, DAILY (EACH MORNING UNTIL DECEMBER 2018)
     Dates: start: 20171128
  18. FEBUXOSTAT. [Concomitant]
     Active Substance: FEBUXOSTAT
     Dosage: 1 DF, DAILY (AT LUNCH)
     Dates: start: 20171122
  19. ACETYLSALICYLIC ACID [Concomitant]
     Active Substance: ASPIRIN
     Dosage: 1 DF, DAILY (EACH MORNING)
     Dates: start: 20180124

REACTIONS (1)
  - Acute kidney injury [Recovered/Resolved]

NARRATIVE: CASE EVENT DATE: 20180727
